FAERS Safety Report 7061088-5 (Version None)
Quarter: 2010Q4

REPORT INFORMATION
  Report Type: 
  Country: None (occurrence: None)
  Receive Date: 20101026
  Receipt Date: 20101015
  Transmission Date: 20110411
  Serious: Yes (Other)
  Sender: FDA-Public Use
  Company Number: US-JNJFOC-20100508932

PATIENT
  Sex: Male
  Weight: 49.9 kg

DRUGS (1)
  1. REMICADE [Suspect]
     Indication: CROHN'S DISEASE
     Route: 042

REACTIONS (3)
  - COLONIC STENOSIS [None]
  - DRUG SPECIFIC ANTIBODY PRESENT [None]
  - TRANSFUSION [None]
